FAERS Safety Report 4748695-7 (Version None)
Quarter: 2005Q3

REPORT INFORMATION
  Report Type: 
  Country: None (occurrence: None)
  Receive Date: 20050819
  Receipt Date: 20050429
  Transmission Date: 20060218
  Serious: Yes (Hospitalization)
  Sender: FDA-Public Use
  Company Number: DE-AMGEN-UK129851

PATIENT
  Sex: Male

DRUGS (2)
  1. CINACALCET [Suspect]
     Indication: HYPERPARATHYROIDISM SECONDARY
     Route: 048
     Dates: start: 20041213, end: 20050425
  2. CALCIUM GLUCONATE [Suspect]

REACTIONS (2)
  - CONDITION AGGRAVATED [None]
  - HYPERPARATHYROIDISM [None]
